FAERS Safety Report 8427317-8 (Version None)
Quarter: 2012Q2

REPORT INFORMATION
  Report Type: 
  Country: None (occurrence: None)
  Receive Date: 20120611
  Receipt Date: 20120605
  Transmission Date: 20120825
  Serious: Yes (Other)
  Sender: FDA-Public Use
  Company Number: US-PFIZER INC-2012087065

PATIENT
  Sex: Female

DRUGS (3)
  1. REVATIO [Suspect]
     Indication: PULMONARY HYPERTENSION
     Dosage: 20 MG, 3X/DAY
  2. REVATIO [Suspect]
     Dosage: UNK
  3. LETAIRIS [Concomitant]
     Dosage: UNK

REACTIONS (3)
  - FALL [None]
  - BACK INJURY [None]
  - ABDOMINAL DISCOMFORT [None]
